FAERS Safety Report 22068865 (Version 1)
Quarter: 2023Q1

REPORT INFORMATION
  Report Type: Spontaneous
  Country: US (occurrence: US)
  Receive Date: 20230307
  Receipt Date: 20230307
  Transmission Date: 20230418
  Serious: No
  Sender: FDA-Public Use
  Company Number: US-AMNEAL PHARMACEUTICALS-2022-AMRX-01327

PATIENT
  Sex: Male

DRUGS (1)
  1. RYTARY [Suspect]
     Active Substance: CARBIDOPA\LEVODOPA
     Indication: Product used for unknown indication
     Dosage: 1 CAPSULE BY MOUTH AT 8 AM, NOON, AND 4 PM, THEN TAKE 2 CAPSULES AT 08:30PM, AND 10PM
     Route: 048

REACTIONS (2)
  - Intentional dose omission [Unknown]
  - Therapeutic response shortened [Unknown]
